FAERS Safety Report 6896945-3 (Version None)
Quarter: 2010Q3

REPORT INFORMATION
  Report Type: 
  Country: None (occurrence: None)
  Receive Date: 20100802
  Receipt Date: 20070427
  Transmission Date: 20110219
  Serious: No
  Sender: FDA-Public Use
  Company Number: US-PFIZER INC-2007007090

PATIENT
  Sex: Female
  Weight: 74.84 kg

DRUGS (8)
  1. LYRICA [Suspect]
     Indication: PARAESTHESIA
     Route: 048
     Dates: start: 20061103, end: 20061130
  2. LYRICA [Suspect]
     Indication: DIABETIC NEUROPATHY
  3. AVANDIA [Concomitant]
  4. HYDROCHLOROTHIAZIDE [Concomitant]
  5. ACEON [Concomitant]
  6. ATENOLOL [Concomitant]
  7. PRAVASTATIN [Concomitant]
  8. STARLIX [Concomitant]

REACTIONS (4)
  - EPISTAXIS [None]
  - EYE SWELLING [None]
  - HYPERSENSITIVITY [None]
  - SWELLING FACE [None]
